FAERS Safety Report 10692330 (Version 1)
Quarter: 2015Q1

REPORT INFORMATION
  Report Type: Spontaneous
  Country: US (occurrence: US)
  Receive Date: 20150106
  Receipt Date: 20150106
  Transmission Date: 20150720
  Serious: No
  Sender: FDA-Public Use
  Company Number: US-BIOGENIDEC-2015BI000553

PATIENT
  Age: 56 Year
  Sex: Female

DRUGS (2)
  1. TECFIDERA [Suspect]
     Active Substance: DIMETHYL FUMARATE
     Indication: MULTIPLE SCLEROSIS
     Route: 048
     Dates: start: 20130819
  2. TUSSIN [Concomitant]
     Active Substance: GUAIFENESIN

REACTIONS (5)
  - Abdominal pain upper [Not Recovered/Not Resolved]
  - Drug dose omission [Recovered/Resolved]
  - Nasopharyngitis [Unknown]
  - Feeling abnormal [Unknown]
  - Pyrexia [Recovered/Resolved]

NARRATIVE: CASE EVENT DATE: 201308
